FAERS Safety Report 18454322 (Version 1)
Quarter: 2020Q4

REPORT INFORMATION
  Report Type: Report from Study
  Country: US (occurrence: US)
  Receive Date: 20201102
  Receipt Date: 20201102
  Transmission Date: 20210114
  Serious: Yes (Death, Life-Threatening, Other)
  Sender: FDA-Public Use
  Company Number: NVSC2020US291624

PATIENT
  Age: 81 Year
  Sex: Male

DRUGS (2)
  1. BENDAMUSTINE [Concomitant]
     Active Substance: BENDAMUSTINE
     Indication: CHEMOTHERAPY
     Dosage: UNK
     Route: 065
  2. KYMRIAH [Suspect]
     Active Substance: TISAGENLECLEUCEL
     Indication: DIFFUSE LARGE B-CELL LYMPHOMA
     Dosage: UNK, ONCE/SINGLE
     Route: 041
     Dates: start: 20190215

REACTIONS (9)
  - Organ failure [Unknown]
  - Haemoglobin decreased [Unknown]
  - Diffuse large B-cell lymphoma [Fatal]
  - Neutrophil count increased [Unknown]
  - Malignant neoplasm progression [Fatal]
  - Respiratory failure [Unknown]
  - Infection [Unknown]
  - Haematocrit decreased [Unknown]
  - White blood cell count increased [Unknown]
